FAERS Safety Report 4532088-1 (Version None)
Quarter: 2004Q4

REPORT INFORMATION
  Report Type: 
  Country: None (occurrence: None)
  Receive Date: 20041217
  Receipt Date: 20041208
  Transmission Date: 20050328
  Serious: Yes (Life-Threatening, Hospitalization)
  Sender: FDA-Public Use
  Company Number: 2004-12-0408

PATIENT
  Sex: Female

DRUGS (1)
  1. TEMODAL [Suspect]
     Indication: GLIOMA
     Dosage: 250 MG/M2 ORAL
     Route: 048
     Dates: start: 20040101

REACTIONS (3)
  - C-REACTIVE PROTEIN INCREASED [None]
  - PLATELET COUNT DECREASED [None]
  - WHITE BLOOD CELL COUNT DECREASED [None]
